FAERS Safety Report 7753888-0 (Version None)
Quarter: 2011Q3

REPORT INFORMATION
  Report Type: 
  Country: None (occurrence: None)
  Receive Date: 20110825
  Receipt Date: 20110721
  Transmission Date: 20111222
  Serious: No
  Sender: FDA-Public Use
  Company Number: 332760

PATIENT
  Age: 51 Year
  Sex: Female

DRUGS (3)
  1. LANTUS [Concomitant]
  2. NOVOLOG [Concomitant]
  3. VICTOZA [Suspect]
     Indication: TYPE 2 DIABETES MELLITUS
     Dosage: 1.2 MG, QD, SUBCUTANEOUS
     Route: 058

REACTIONS (5)
  - WEIGHT DECREASED [None]
  - DRUG EFFECT INCREASED [None]
  - HEADACHE [None]
  - GASTROOESOPHAGEAL REFLUX DISEASE [None]
  - NAUSEA [None]
